FAERS Safety Report 7158439 (Version 17)
Quarter: 2014Q2

REPORT INFORMATION
  Report Type: Report from Study
  Country: CA (occurrence: CA)
  Receive Date: 20091026
  Receipt Date: 20140516
  Transmission Date: 20141212
  Serious: Yes (Other)
  Sender: FDA-Public Use
  Company Number: PHHY2008CA28202

PATIENT
  Age: 81 Year
  Sex: Male

DRUGS (19)
  1. SANDOSTATIN LAR [Suspect]
     Indication: CARCINOID TUMOUR
     Dosage: 30 MG, EVERY 4 WEEKS
     Route: 030
     Dates: start: 20010903
  2. SANDOSTATIN LAR [Suspect]
     Indication: METASTASES TO LIVER
     Dosage: 20 MG, EVERY 4 WEEKS
     Route: 030
  3. SANDOSTATIN LAR [Suspect]
     Dosage: 30 MG, EVERY 4 WEEKS
     Route: 030
  4. SANDOSTATIN LAR [Suspect]
     Dosage: 60 MG, EVERY 30 DAYS
     Route: 030
  5. SANDOSTATIN LAR [Suspect]
     Dosage: 30 MG, BIW
     Route: 030
  6. SANDOSTATIN [Suspect]
     Dosage: UNK UKN, UNK
     Route: 058
  7. LIPITOR [Concomitant]
     Dosage: UNK UKN, UNK
  8. ASA [Concomitant]
     Dosage: UNK UKN, UNK
  9. ATIVAN [Concomitant]
     Dosage: 1 MG, QD
  10. NEXIUM [Concomitant]
     Dosage: UNK UKN, UNK
  11. CALCIUM [Concomitant]
     Dosage: UNK UKN, UNK
  12. VITAMIN D [Concomitant]
     Dosage: UNK UKN, UNK
  13. NITRO [Concomitant]
     Dosage: UNK UKN, UNK
  14. PLAVIX [Concomitant]
     Dosage: UNK UKN, UNK
  15. FLOMOX//CEFCAPENE PIVOXIL HYDROCHLORIDE [Concomitant]
     Dosage: UNK UKN, UNK
  16. ACTONEL [Concomitant]
     Dosage: UNK UKN, UNK
  17. CHOLESTYRAMINE [Concomitant]
     Dosage: UNK UKN, UNK
  18. DEXILANT [Concomitant]
     Dosage: UNK UKN, UNK
  19. METHAZOLAMIDE [Concomitant]
     Dosage: UNK UKN, UNK

REACTIONS (8)
  - Palpitations [Recovered/Resolved]
  - Dyspnoea [Recovered/Resolved]
  - Heart rate increased [Recovered/Resolved]
  - Heart rate irregular [Recovered/Resolved]
  - Blood pressure diastolic decreased [Not Recovered/Not Resolved]
  - Blood pressure increased [Unknown]
  - Stress [Unknown]
  - Bradycardia [Not Recovered/Not Resolved]
